FAERS Safety Report 21920368 (Version 2)
Quarter: 2023Q1

REPORT INFORMATION
  Report Type: Report from Study
  Country: CA (occurrence: CA)
  Receive Date: 20230127
  Receipt Date: 20230217
  Transmission Date: 20230417
  Serious: Yes (Other)
  Sender: FDA-Public Use
  Company Number: CA-009507513-2301CAN009772

PATIENT
  Age: 49 Year
  Sex: Female

DRUGS (2)
  1. PEMBROLIZUMAB [Suspect]
     Active Substance: PEMBROLIZUMAB
     Indication: Breast cancer
     Dosage: 200MG, EVERY 3 WEEKS
     Route: 042
     Dates: start: 20220714
  2. PEMBROLIZUMAB [Suspect]
     Active Substance: PEMBROLIZUMAB
     Dosage: 200MG, EVERY 3 WEEKS
     Route: 042
     Dates: start: 20230123

REACTIONS (3)
  - Mastectomy [Unknown]
  - Vascular access complication [Unknown]
  - Fatigue [Unknown]

NARRATIVE: CASE EVENT DATE: 20230109
